FAERS Safety Report 10487793 (Version 1)
Quarter: 2014Q4

REPORT INFORMATION
  Report Type: Spontaneous
  Country: US (occurrence: US)
  Receive Date: 20141001
  Receipt Date: 20141001
  Transmission Date: 20150528
  Serious: Yes (Other)
  Sender: FDA-Public Use
  Company Number: US-BAYER-2014-144045

PATIENT
  Age: 52 Year
  Sex: Male
  Weight: 109 kg

DRUGS (2)
  1. EX-LAX [SENNA ALEXANDRINA] [Concomitant]
  2. ALKA-SELTZER ORIGINAL [Suspect]
     Active Substance: ANHYDROUS CITRIC ACID\ASPIRIN\SODIUM BICARBONATE
     Indication: GASTROOESOPHAGEAL REFLUX DISEASE
     Dosage: 2 DF, PRN
     Route: 048
     Dates: start: 20140922

REACTIONS (14)
  - Dizziness [Not Recovered/Not Resolved]
  - Dysgeusia [Not Recovered/Not Resolved]
  - Head discomfort [Unknown]
  - Dyspnoea [Not Recovered/Not Resolved]
  - Product quality issue [None]
  - Drug administration error [Unknown]
  - Somnolence [Recovered/Resolved]
  - Depressed mood [Not Recovered/Not Resolved]
  - Loss of consciousness [Recovered/Resolved]
  - Headache [Not Recovered/Not Resolved]
  - Malaise [Not Recovered/Not Resolved]
  - Penile infection [Not Recovered/Not Resolved]
  - Movement disorder [Recovered/Resolved]
  - Hypopnoea [Recovered/Resolved]

NARRATIVE: CASE EVENT DATE: 20140922
